FAERS Safety Report 7364860 (Version 5)
Quarter: 2013Q2

REPORT INFORMATION
  Report Type: Spontaneous
  Country: US (occurrence: US)
  Receive Date: 20100125
  Receipt Date: 20130419
  Transmission Date: 20140414
  Serious: Yes (Hospitalization, Other)
  Sender: FDA-Public Use
  Company Number: US-BAYER-201011749NA

PATIENT
  Age: 15 Year
  Sex: Female
  Weight: 79.82 kg

DRUGS (8)
  1. OCELLA [Suspect]
     Indication: MENSTRUAL CYCLE MANAGEMENT
     Dosage: 1 DF, QD
     Dates: start: 20070829, end: 20090813
  2. YAZ [Suspect]
     Indication: MENSTRUAL CYCLE MANAGEMENT
     Dosage: 1 DF, QD
     Dates: start: 2003, end: 2009
  3. YASMIN [Suspect]
     Dosage: UNK
     Dates: start: 20070829, end: 20090813
  4. TRAMADOL [Concomitant]
     Dosage: 50 MG, UNK
     Route: 048
     Dates: start: 20080620, end: 20090813
  5. FLEXERIL [Concomitant]
     Dosage: 10 MG, UNK
     Route: 048
     Dates: start: 20090727, end: 20090813
  6. MOTRIN [Concomitant]
     Dosage: 800 MG, UNK
     Route: 048
     Dates: start: 20090727, end: 20090813
  7. DEPO PROVERA [Concomitant]
     Dosage: UNK
     Dates: start: 20090916
  8. HYDROXYUREA [Concomitant]

REACTIONS (7)
  - Deep vein thrombosis [None]
  - Deep vein thrombosis [None]
  - Joint swelling [None]
  - Pain [None]
  - Desmoid tumour [None]
  - Lower extremity mass [None]
  - Swelling [None]
